FAERS Safety Report 8174710 (Version 5)
Quarter: 2013Q1

REPORT INFORMATION
  Report Type: Spontaneous
  Country: US (occurrence: US)
  Receive Date: 20111010
  Receipt Date: 20130320
  Transmission Date: 20140127
  Serious: Yes (Other)
  Sender: FDA-Public Use
  Company Number: US-ASTRAZENECA-2011SE56938

PATIENT
  Age: 61 Year
  Sex: Female

DRUGS (8)
  1. NEXIUM [Suspect]
     Indication: BARRETT^S OESOPHAGUS
     Route: 048
  2. PRILOSEC [Suspect]
     Route: 048
  3. LIPITOR [Suspect]
     Route: 065
  4. SIMVASTATIN [Suspect]
     Route: 065
  5. ANTIBIOTIC [Concomitant]
  6. GLIMEPIRIDE [Concomitant]
  7. METFORMIN [Concomitant]
  8. PREDNISONE [Concomitant]

REACTIONS (8)
  - Cataract [Unknown]
  - Hepatitis [Unknown]
  - Swelling [Unknown]
  - Gastric disorder [Unknown]
  - Liver disorder [Unknown]
  - Abdominal discomfort [Unknown]
  - Abdominal pain [Unknown]
  - Drug ineffective [Unknown]
